FAERS Safety Report 8307372-6 (Version None)
Quarter: 2012Q2

REPORT INFORMATION
  Report Type: 
  Country: None (occurrence: None)
  Receive Date: 20120424
  Receipt Date: 20120419
  Transmission Date: 20120825
  Serious: Yes (Other)
  Sender: FDA-Public Use
  Company Number: GB-BIOGENIDEC-2012BI009692

PATIENT
  Age: 19 Year
  Sex: Female

DRUGS (2)
  1. TYSABRI [Suspect]
  2. TYSABRI [Suspect]
     Indication: PRODUCT USED FOR UNKNOWN INDICATION
     Dates: start: 20110319

REACTIONS (1)
  - COGNITIVE DISORDER [None]
